FAERS Safety Report 7227120-0 (Version None)
Quarter: 2011Q1

REPORT INFORMATION
  Report Type: 
  Country: None (occurrence: None)
  Receive Date: 20110114
  Receipt Date: 20110111
  Transmission Date: 20110831
  Serious: Yes (Death)
  Sender: FDA-Public Use
  Company Number: JP-PFIZER INC-2010176065

PATIENT
  Age: 60 Year
  Sex: Female
  Weight: 67.4 kg

DRUGS (6)
  1. BIOFERMIN [Concomitant]
     Dosage: 3 G, 1X/DAY
     Route: 048
     Dates: start: 20090428
  2. LASIX [Concomitant]
     Dosage: 10 MG, 2X/DAY
     Route: 042
     Dates: start: 20090601
  3. ZYVOX [Suspect]
     Indication: HYDROCEPHALUS
  4. BARACLUDE [Concomitant]
     Dosage: 0.5 MG, 1X/DAY
     Route: 048
     Dates: start: 20090428
  5. ZYVOX [Suspect]
     Indication: SUBARACHNOID HAEMORRHAGE
     Dosage: 600 MG, 2X/DAY
     Route: 041
     Dates: start: 20090707, end: 20090722
  6. ZEFFIX [Concomitant]
     Dosage: 100 MG, 1X/DAY
     Route: 048
     Dates: start: 20090428

REACTIONS (3)
  - PLATELET COUNT DECREASED [None]
  - DISSEMINATED INTRAVASCULAR COAGULATION [None]
  - ANAEMIA [None]
